FAERS Safety Report 23048859 (Version 1)
Quarter: 2023Q4

REPORT INFORMATION
  Report Type: Spontaneous
  Country: US (occurrence: US)
  Receive Date: 20231010
  Receipt Date: 20231010
  Transmission Date: 20240110
  Serious: No
  Sender: FDA-Public Use
  Company Number: US-TAKEDA-2023TUS097234

PATIENT
  Sex: Male
  Weight: 77 kg

DRUGS (1)
  1. LIVTENCITY [Suspect]
     Active Substance: MARIBAVIR
     Indication: Renal transplant
     Dosage: 400 MILLIGRAM, BID
     Route: 065
     Dates: start: 20230920

REACTIONS (1)
  - Dysgeusia [Unknown]
